FAERS Safety Report 6138753-7 (Version None)
Quarter: 2009Q1

REPORT INFORMATION
  Report Type: 
  Country: None (occurrence: None)
  Receive Date: 20090331
  Receipt Date: 20090302
  Transmission Date: 20090719
  Serious: No
  Sender: FDA-Public Use
  Company Number: US-TYCO HEALTHCARE/MALLINCKRODT-T200900590

PATIENT
  Sex: Male
  Weight: 117.91 kg

DRUGS (2)
  1. TUSSICAPS EXTENDED-RELEASE [Suspect]
     Indication: COUGH
     Dosage: ONE CAPSULE, SINGLE
     Route: 048
     Dates: start: 20090226, end: 20090226
  2. AVELOX                             /01453201/ [Concomitant]
     Indication: SINUSITIS
     Dosage: UNK
     Route: 048
     Dates: start: 20090201

REACTIONS (5)
  - DIZZINESS [None]
  - HYPOAESTHESIA [None]
  - LOSS OF CONSCIOUSNESS [None]
  - NAUSEA [None]
  - VERTIGO [None]
